FAERS Safety Report 4328106-6 (Version None)
Quarter: 2004Q1

REPORT INFORMATION
  Report Type: 
  Country: None (occurrence: None)
  Receive Date: 20040325
  Receipt Date: 20040310
  Transmission Date: 20041129
  Serious: Yes (Hospitalization)
  Sender: FDA-Public Use
  Company Number: 190078

PATIENT
  Age: 54 Year
  Sex: Female

DRUGS (5)
  1. AVONEX [Suspect]
     Indication: MULTIPLE SCLEROSIS
     Dosage: 30 MCG QW IM
     Route: 030
     Dates: start: 19970724
  2. HYDROCHLOROTHIAZIDE [Concomitant]
  3. CELEXA [Concomitant]
  4. ZANAFLEX [Concomitant]
  5. VIOXX [Concomitant]

REACTIONS (2)
  - BRONCHITIS [None]
  - HEART RATE DECREASED [None]
